FAERS Safety Report 10959822 (Version 1)
Quarter: 2015Q1

REPORT INFORMATION
  Report Type: Spontaneous
  Country: US (occurrence: None)
  Receive Date: 20150326
  Receipt Date: 20150326
  Transmission Date: 20150721
  Serious: Yes (Hospitalization)
  Sender: FDA-Public Use
  Company Number: None

PATIENT
  Age: 69 Year
  Sex: Male
  Weight: 83.5 kg

DRUGS (2)
  1. TAXOL [Suspect]
     Active Substance: PACLITAXEL
     Dates: start: 20150306
  2. CARBOPLATIN. [Suspect]
     Active Substance: CARBOPLATIN
     Dates: start: 20150306

REACTIONS (5)
  - Dizziness [None]
  - Syncope [None]
  - Blood pressure decreased [None]
  - Nausea [None]
  - Dehydration [None]

NARRATIVE: CASE EVENT DATE: 20150316
